FAERS Safety Report 8556228-2 (Version None)
Quarter: 2012Q3

REPORT INFORMATION
  Report Type: 
  Country: None (occurrence: None)
  Receive Date: 20120801
  Receipt Date: 20120724
  Transmission Date: 20120928
  Serious: Yes (Hospitalization, Other)
  Sender: FDA-Public Use
  Company Number: US-US-EMD SERONO, INC.-7149988

PATIENT
  Sex: Female
  Weight: 84 kg

DRUGS (3)
  1. UNSPECIFIED MEDICATION [Concomitant]
     Indication: HYPERTENSION
  2. LIPITOR [Concomitant]
     Indication: BLOOD CHOLESTEROL INCREASED
  3. REBIF [Suspect]
     Indication: MULTIPLE SCLEROSIS
     Route: 058
     Dates: start: 20110921, end: 20120701

REACTIONS (2)
  - DIABETES MELLITUS [None]
  - CEREBROVASCULAR ACCIDENT [None]
